FAERS Safety Report 7479353-6 (Version None)
Quarter: 2011Q2

REPORT INFORMATION
  Report Type: 
  Country: None (occurrence: None)
  Receive Date: 20110513
  Receipt Date: 20110502
  Transmission Date: 20111010
  Serious: Yes (Other)
  Sender: FDA-Public Use
  Company Number: US-ELI_LILLY_AND_COMPANY-US201104006533

PATIENT
  Sex: Female

DRUGS (1)
  1. HUMALOG MIX 75/25 [Suspect]
     Indication: DIABETES MELLITUS
     Dosage: 12 U, UNK

REACTIONS (4)
  - EYE DISORDER [None]
  - INCORRECT DOSE ADMINISTERED [None]
  - CATARACT [None]
  - EYE HAEMORRHAGE [None]
